FAERS Safety Report 15761464 (Version 1)
Quarter: 2018Q4

REPORT INFORMATION
  Report Type: Spontaneous
  Country: US (occurrence: US)
  Receive Date: 20181226
  Receipt Date: 20181226
  Transmission Date: 20190205
  Serious: Yes (Death)
  Sender: FDA-Public Use
  Company Number: None

PATIENT
  Age: 84 Year
  Sex: Male

DRUGS (4)
  1. ONDANSERTRON HYDROCHLORIDE [Concomitant]
     Active Substance: ONDANSETRON HYDROCHLORIDE
     Dates: start: 20181116, end: 20181218
  2. FUROSEMIDE. [Concomitant]
     Active Substance: FUROSEMIDE
     Dates: start: 20180918, end: 20181018
  3. CLOTRIMAZOLE-BETAMETHASONE LOTION [Concomitant]
     Dates: start: 20181203, end: 20181218
  4. CAPECITABINE. [Suspect]
     Active Substance: CAPECITABINE
     Indication: HAEMATOLOGICAL MALIGNANCY
     Route: 048
     Dates: start: 20181119, end: 20181218

REACTIONS (3)
  - Neoplasm malignant [None]
  - Haemorrhage [None]
  - Haemoptysis [None]

NARRATIVE: CASE EVENT DATE: 20181219
